FAERS Safety Report 9391744 (Version 1)
Quarter: 2013Q3

REPORT INFORMATION
  Report Type: Spontaneous
  Country: LT (occurrence: LT)
  Receive Date: 20130709
  Receipt Date: 20130709
  Transmission Date: 20140515
  Serious: Yes (Life-Threatening, Hospitalization)
  Sender: FDA-Public Use
  Company Number: LT-GLAXOSMITHKLINE-B0906576A

PATIENT
  Age: 24 Year
  Sex: Female
  Weight: 55 kg

DRUGS (5)
  1. ZINACEF [Suspect]
     Indication: ANTIBIOTIC PROPHYLAXIS
     Route: 042
     Dates: start: 20130612
  2. ESMERON [Concomitant]
     Indication: ANAESTHESIA
     Route: 042
     Dates: start: 20130612
  3. PROPOFOL [Concomitant]
     Indication: ANAESTHESIA
     Route: 042
     Dates: start: 20130612
  4. LYSTHENON [Concomitant]
     Indication: ANAESTHESIA
     Route: 042
     Dates: start: 20130612
  5. FENTANYL [Concomitant]
     Indication: ANAESTHESIA
     Route: 042
     Dates: start: 20130612

REACTIONS (4)
  - Laryngeal oedema [Recovered/Resolved]
  - Hepatic failure [Recovered/Resolved]
  - Laryngospasm [Recovered/Resolved]
  - Bronchospasm [Recovered/Resolved]
